FAERS Safety Report 21454717 (Version 1)
Quarter: 2022Q4

REPORT INFORMATION
  Report Type: Spontaneous
  Country: GB (occurrence: GB)
  Receive Date: 20221014
  Receipt Date: 20221014
  Transmission Date: 20230113
  Serious: Yes (Disabling, Other)
  Sender: FDA-Public Use
  Company Number: GB-MHRA-MED-202209301600444270-JSRBZ

PATIENT
  Sex: Female

DRUGS (1)
  1. CIPROFLOXACIN [Suspect]
     Active Substance: CIPROFLOXACIN
     Indication: Product used for unknown indication

REACTIONS (18)
  - Dysphagia [Recovered/Resolved]
  - Panic attack [Recovered/Resolved]
  - Fear of death [Recovered/Resolved with Sequelae]
  - Loss of employment [Not Recovered/Not Resolved]
  - Respiratory fatigue [Recovering/Resolving]
  - Costochondritis [Recovering/Resolving]
  - Muscular weakness [Not Recovered/Not Resolved]
  - Muscle fatigue [Not Recovered/Not Resolved]
  - Tendon pain [Not Recovered/Not Resolved]
  - Tendon pain [Not Recovered/Not Resolved]
  - Tendonitis [Not Recovered/Not Resolved]
  - Headache [Recovered/Resolved]
  - Poor quality sleep [Recovered/Resolved with Sequelae]
  - Anxiety [Recovered/Resolved with Sequelae]
  - Hypoaesthesia oral [Recovered/Resolved]
  - Hypoaesthesia [Recovered/Resolved]
  - Insomnia [Recovered/Resolved with Sequelae]
  - Palpitations [Not Recovered/Not Resolved]
